FAERS Safety Report 7982712-6 (Version None)
Quarter: 2011Q4

REPORT INFORMATION
  Report Type: 
  Country: None (occurrence: None)
  Receive Date: 20111215
  Receipt Date: 20111207
  Transmission Date: 20120403
  Serious: Yes (Hospitalization)
  Sender: FDA-Public Use
  Company Number: BR-BRISTOL-MYERS SQUIBB COMPANY-16280356

PATIENT
  Age: 53 Year
  Sex: Female
  Weight: 99 kg

DRUGS (9)
  1. MANIDIPINE HCL [Concomitant]
     Indication: BLOOD PRESSURE
     Dosage: 0.5 TAB IN THE MRNG STARTED ON 2YRS AGO
     Route: 048
  2. LEVOTHYROXINE SODIUM [Concomitant]
     Indication: THYROID DISORDER
     Dosage: 1 TAB IN FASTING LONGTIME AGO STARTED
     Route: 048
  3. RASILEZ [Concomitant]
     Indication: BLOOD PRESSURE
     Dosage: 1 TAB BEFORE LUNCH LONGTIME AGO STARTED
     Route: 048
  4. EPOGEN [Concomitant]
     Indication: RENAL IMPAIRMENT
     Route: 048
     Dates: start: 20110101
  5. HYGROTON [Concomitant]
     Indication: BLOOD PRESSURE
     Dosage: STARTED ON LONG TIME AGO
     Route: 048
  6. HUMULIN 70/30 [Concomitant]
     Indication: DIABETES MELLITUS
     Dosage: 56 IU IN THE MORNING AND 28IU IN THE NIGHT
     Route: 058
  7. IRBESARTAN [Suspect]
     Indication: BLOOD PRESSURE
     Dosage: 2DF=1TAB IN THE MORNING AND 1 TAB IN THE NIGHT
     Route: 048
  8. APIDRA [Concomitant]
     Indication: DIABETES MELLITUS
     Dosage: 1DF=2-6IU STARTED ON 1YR AGO
     Route: 058
  9. LEXOTAN [Concomitant]
     Indication: ANXIETY
     Dosage: 0.5 TAB IS MORING STARTED ON 3YRS AGO
     Route: 048

REACTIONS (5)
  - BLOOD PRESSURE INADEQUATELY CONTROLLED [None]
  - FORMICATION [None]
  - BACTERIAL INFECTION [None]
  - HEADACHE [None]
  - ESCHERICHIA INFECTION [None]
